FAERS Safety Report 24573483 (Version 1)
Quarter: 2024Q4

REPORT INFORMATION
  Report Type: Spontaneous
  Country: IT (occurrence: IT)
  Receive Date: 20241102
  Receipt Date: 20241102
  Transmission Date: 20250115
  Serious: Yes (Death, Other)
  Sender: GENMAB
  Company Number: IT-ABBVIE-5985863

PATIENT
  Sex: Male

DRUGS (1)
  1. EPCORITAMAB [Suspect]
     Active Substance: EPCORITAMAB
     Indication: Product used for unknown indication
     Dosage: 0.8 MILLIGRAM
     Route: 058

REACTIONS (3)
  - Cardiac arrest [Fatal]
  - Hypotension [Unknown]
  - Oxygen saturation decreased [Unknown]
